FAERS Safety Report 14026904 (Version 1)
Quarter: 2017Q3

REPORT INFORMATION
  Report Type: Other
  Country: GB (occurrence: ES)
  Receive Date: 20170929
  Receipt Date: 20170929
  Transmission Date: 20171128
  Serious: Yes (Death, Life-Threatening, Other)
  Sender: FDA-Public Use
  Company Number: ES-INTERNATIONAL MEDICATION SYSTEMS, LIMITED-2028316

PATIENT
  Age: 47 Year
  Sex: Male

DRUGS (1)
  1. EPINEPHRINE BOLUS [Suspect]
     Active Substance: EPINEPHRINE
     Indication: PULSELESS ELECTRICAL ACTIVITY

REACTIONS (2)
  - Death [Fatal]
  - Drug ineffective [Fatal]
